FAERS Safety Report 5201937-6 (Version None)
Quarter: 2007Q1

REPORT INFORMATION
  Report Type: 
  Country: None (occurrence: None)
  Receive Date: 20070103
  Receipt Date: 20061222
  Transmission Date: 20070707
  Serious: Yes (Other)
  Sender: FDA-Public Use
  Company Number: HQWYE488606DEC06

PATIENT
  Age: 30 Year
  Sex: Female

DRUGS (3)
  1. LEVONORGESTREL + ETHINYL ESTRADIOL [Suspect]
     Indication: CONTRACEPTION
     Dosage: SEE IMAGE
     Route: 048
     Dates: start: 20060601, end: 20060924
  2. LEVONORGESTREL + ETHINYL ESTRADIOL [Suspect]
     Indication: CONTRACEPTION
     Dosage: SEE IMAGE
     Route: 048
     Dates: start: 20060101, end: 20061201
  3. DIOVAN [Concomitant]

REACTIONS (9)
  - AGITATION [None]
  - DIARRHOEA [None]
  - DYSMENORRHOEA [None]
  - GENITAL HAEMORRHAGE [None]
  - INAPPROPRIATE SCHEDULE OF DRUG ADMINISTRATION [None]
  - MENSTRUATION DELAYED [None]
  - UTERINE HAEMORRHAGE [None]
  - UTERINE INJURY [None]
  - VOMITING [None]
